FAERS Safety Report 21095092 (Version 1)
Quarter: 2022Q3

REPORT INFORMATION
  Report Type: Spontaneous
  Country: US (occurrence: None)
  Receive Date: 20220716
  Receipt Date: 20220716
  Transmission Date: 20221027
  Serious: Yes (unspecified)
  Sender: FDA-Public Use
  Company Number: None

PATIENT
  Age: 28 Year
  Sex: Female
  Weight: 80.1 kg

DRUGS (1)
  1. FLUOXETINE [Suspect]
     Active Substance: FLUOXETINE HYDROCHLORIDE
     Indication: Depression
     Dosage: FREQUENCY : AT BEDTIME;?
     Route: 048
     Dates: start: 20220624, end: 20220714

REACTIONS (5)
  - Product substitution issue [None]
  - Hypertension [None]
  - Vision blurred [None]
  - Musculoskeletal stiffness [None]
  - Anxiety [None]

NARRATIVE: CASE EVENT DATE: 20220624
